FAERS Safety Report 14092252 (Version 1)
Quarter: 2017Q4

REPORT INFORMATION
  Report Type: Spontaneous
  Country: US (occurrence: US)
  Receive Date: 20171014
  Receipt Date: 20171014
  Transmission Date: 20180321
  Serious: Yes (Other)
  Sender: FDA-Public Use
  Company Number: None

PATIENT
  Age: 33 Year
  Sex: Female
  Weight: 59.4 kg

DRUGS (5)
  1. AMOXICILLIN WITH CLAVULANIC ACID [Suspect]
     Active Substance: AMOXICILLIN\CLAVULANIC ACID
     Indication: PHARYNGITIS STREPTOCOCCAL
     Route: 048
  2. VITAMIN D [Concomitant]
     Active Substance: CHOLECALCIFEROL
  3. DHA [Concomitant]
     Active Substance: DIETARY SUPPLEMENT
  4. MIRENA [Concomitant]
     Active Substance: LEVONORGESTREL
  5. MULTIVITAMIN [Concomitant]
     Active Substance: VITAMINS

REACTIONS (7)
  - Ear swelling [None]
  - Ear pain [None]
  - Rash generalised [None]
  - Rash pruritic [None]
  - Lip swelling [None]
  - Rash [None]
  - Lip pain [None]

NARRATIVE: CASE EVENT DATE: 20171013
